FAERS Safety Report 14446675 (Version 1)
Quarter: 2018Q1

REPORT INFORMATION
  Report Type: Spontaneous
  Country: ES (occurrence: ES)
  Receive Date: 20180126
  Receipt Date: 20180126
  Transmission Date: 20180509
  Serious: Yes (Life-Threatening, Hospitalization)
  Sender: FDA-Public Use
  Company Number: ES-JNJFOC-20180128588

PATIENT
  Age: 57 Year
  Sex: Male

DRUGS (4)
  1. NOLOTIL (METAMIZOLE MAGNESIUM) [Suspect]
     Active Substance: METAMIZOLE MAGNESIUM
     Indication: URINARY RETENTION
     Route: 048
     Dates: start: 20160715, end: 20160723
  2. IBUPROFENO (1769A) [Suspect]
     Active Substance: IBUPROFEN
     Route: 048
  3. IBUPROFENO (1769A) [Suspect]
     Active Substance: IBUPROFEN
     Indication: URINARY RETENTION
     Route: 048
     Dates: start: 20160715, end: 20160723
  4. CEFUROXIME. [Concomitant]
     Active Substance: CEFUROXIME
     Indication: PRODUCT USED FOR UNKNOWN INDICATION
     Route: 048
     Dates: start: 20160715, end: 20160723

REACTIONS (1)
  - Upper gastrointestinal haemorrhage [Recovered/Resolved]

NARRATIVE: CASE EVENT DATE: 20160724
